FAERS Safety Report 26116924 (Version 1)
Quarter: 2025Q4

REPORT INFORMATION
  Report Type: Spontaneous
  Country: TR (occurrence: TR)
  Receive Date: 20251203
  Receipt Date: 20251203
  Transmission Date: 20260118
  Serious: Yes (Other)
  Sender: Haleon PLC
  Company Number: TR-002147023-NVSC2025TR178516

PATIENT
  Age: 37 Year
  Sex: Male

DRUGS (1)
  1. DICLOFENAC [Suspect]
     Active Substance: DICLOFENAC
     Indication: Back pain
     Dosage: UNK?ROUTE OF ADMINISTRATION: UNKNOWN

REACTIONS (2)
  - Ankylosing spondylitis [Not Recovered/Not Resolved]
  - Drug ineffective [Unknown]
